FAERS Safety Report 11685015 (Version 2)
Quarter: 2015Q4

REPORT INFORMATION
  Report Type: Report from Study
  Country: US (occurrence: US)
  Receive Date: 20151030
  Receipt Date: 20151103
  Transmission Date: 20160304
  Serious: Yes (Other)
  Sender: FDA-Public Use
  Company Number: US-ROCHE-1426037

PATIENT
  Age: 33 Year
  Sex: Male

DRUGS (16)
  1. LUCENTIS [Suspect]
     Active Substance: RANIBIZUMAB
     Indication: VITREOUS HAEMORRHAGE
     Dosage: OS
     Route: 050
     Dates: start: 20121010
  2. LUCENTIS [Suspect]
     Active Substance: RANIBIZUMAB
     Indication: DIABETIC RETINOPATHY
     Dosage: OD AND OU
     Route: 050
     Dates: start: 20130510
  3. LUCENTIS [Suspect]
     Active Substance: RANIBIZUMAB
     Dosage: OS
     Route: 050
     Dates: start: 20130412
  4. PHENYLEPHRINE [Concomitant]
     Active Substance: PHENYLEPHRINE\PHENYLEPHRINE HYDROCHLORIDE
     Route: 065
  5. MYDRIACYL [Concomitant]
     Active Substance: TROPICAMIDE
     Route: 065
  6. BETADINE [Concomitant]
     Active Substance: POVIDONE-IODINE
  7. LUCENTIS [Suspect]
     Active Substance: RANIBIZUMAB
     Indication: DIABETIC RETINOPATHY
     Dosage: SINGLE DOSE
     Route: 050
     Dates: start: 20121024
  8. LUCENTIS [Suspect]
     Active Substance: RANIBIZUMAB
     Indication: DIABETIC RETINAL OEDEMA
     Dosage: OD
     Route: 050
     Dates: start: 20121024
  9. LUCENTIS [Suspect]
     Active Substance: RANIBIZUMAB
     Dosage: OS
     Route: 050
     Dates: start: 20130827
  10. XYLOCAINE [Concomitant]
     Active Substance: LIDOCAINE HYDROCHLORIDE
     Route: 065
  11. LUCENTIS [Suspect]
     Active Substance: RANIBIZUMAB
     Dosage: OD
     Route: 050
     Dates: start: 20130314
  12. GLIBENCLAMIDE [Concomitant]
     Active Substance: GLYBURIDE
     Dosage: 1 TABLET BY ORAL ROUTE, EVERY DAY BEFORE BREAKFAST
     Route: 048
  13. PROPARACAINE [Concomitant]
     Active Substance: PROPARACAINE
     Route: 061
  14. LISINOPRIL. [Concomitant]
     Active Substance: LISINOPRIL
     Route: 048
  15. ALCAINE [Concomitant]
     Active Substance: PROPARACAINE HYDROCHLORIDE
     Route: 047
  16. METFORMIN [Concomitant]
     Active Substance: METFORMIN HYDROCHLORIDE
     Dosage: 2 TIMES EVERY DAY, WITH MORNING AND EVENING MEALS
     Route: 048

REACTIONS (12)
  - Visual acuity reduced [Unknown]
  - Prescribed overdose [Unknown]
  - Vitreous detachment [Unknown]
  - Eye haemorrhage [Unknown]
  - Vision blurred [Unknown]
  - Vitreous haemorrhage [Unknown]
  - Retinal aneurysm [Unknown]
  - Retinal neovascularisation [Unknown]
  - Retinal cyst [Unknown]
  - Cataract subcapsular [Unknown]
  - Retinal ischaemia [Unknown]
  - Retinal exudates [Unknown]

NARRATIVE: CASE EVENT DATE: 20121024
